FAERS Safety Report 5277477-5 (Version None)
Quarter: 2007Q1

REPORT INFORMATION
  Report Type: 
  Country: None (occurrence: None)
  Receive Date: 20061213
  Receipt Date: 20040601
  Transmission Date: 20070707
  Serious: Yes (Hospitalization)
  Sender: FDA-Public Use
  Company Number: 2004UW11270

PATIENT
  Age: 84 Year
  Sex: Male
  Weight: 90.7194 kg

DRUGS (9)
  1. SEROQUEL [Suspect]
     Indication: SLEEP DISORDER
     Dosage: 3 DF HS PO
     Route: 048
  2. SEROQUEL [Suspect]
     Indication: SLEEP DISORDER
     Dosage: 1 DF HS PO
     Route: 048
  3. GLYBURIDE [Suspect]
  4. ISOSORBIDE DINITRATE [Suspect]
  5. CEPHALEXIN [Suspect]
  6. DICLOFENAC SODIUM [Suspect]
  7. NO MATCH [Suspect]
     Dosage: 10 MG
  8. HYDROCHLOROTHIAZIDE [Suspect]
  9. METOPROLOL SUCCINATE [Suspect]

REACTIONS (5)
  - DRUG INTERACTION [None]
  - HEART RATE INCREASED [None]
  - HYPERSENSITIVITY [None]
  - HYPOTENSION [None]
  - NIGHTMARE [None]
